FAERS Safety Report 16138375 (Version 2)
Quarter: 2023Q4

REPORT INFORMATION
  Report Type: Spontaneous
  Country: US (occurrence: US)
  Receive Date: 20190401
  Receipt Date: 20231011
  Transmission Date: 20240110
  Serious: Yes (Other)
  Sender: FDA-Public Use
  Company Number: US-AUROBINDO-AUR-APL-2019-016608

PATIENT
  Age: 61 Year
  Sex: Female
  Weight: 63 kg

DRUGS (15)
  1. METHYLPREDNISOLONE [Suspect]
     Active Substance: METHYLPREDNISOLONE
     Indication: Multiple sclerosis
     Dosage: 1 GRAM, 1 MONTH
     Route: 042
  2. CLONAZEPAM [Suspect]
     Active Substance: CLONAZEPAM
     Indication: Multiple sclerosis
     Dosage: 0.5 MILLIGRAM, AT BED TIME
     Route: 065
  3. BACLOFEN [Suspect]
     Active Substance: BACLOFEN
     Indication: Multiple sclerosis
     Dosage: 100 MILLIGRAM, DAILY (TAKEN IN FIVE 20MG DOSES)
     Route: 048
  4. BACLOFEN [Suspect]
     Active Substance: BACLOFEN
     Indication: Multiple sclerosis
     Dosage: 60 MILLIGRAM, TWO TIMES A DAY
     Route: 037
  5. BACLOFEN [Suspect]
     Active Substance: BACLOFEN
     Dosage: 50 MICROGRAM
     Route: 037
  6. BACLOFEN [Suspect]
     Active Substance: BACLOFEN
     Dosage: 25 MICROGRAM
     Route: 065
  7. MYCOPHENOLATE MOFETIL [Suspect]
     Active Substance: MYCOPHENOLATE MOFETIL
     Indication: Multiple sclerosis
     Dosage: 500 MILLIGRAM, TWO TIMES A DAY
     Route: 048
  8. ARMODAFINIL [Concomitant]
     Active Substance: ARMODAFINIL
     Indication: Progressive multiple sclerosis
     Dosage: 50 MILLIGRAM
     Route: 065
  9. SOLIFENACIN [Concomitant]
     Active Substance: SOLIFENACIN
     Indication: Progressive multiple sclerosis
     Dosage: 5 MILLIGRAM
     Route: 065
  10. HYDROCODONE [Concomitant]
     Active Substance: HYDROCODONE
     Indication: Progressive multiple sclerosis
     Dosage: 5 MILLIGRAM
     Route: 065
  11. ACETAMINOPHEN [Concomitant]
     Active Substance: ACETAMINOPHEN
     Indication: Progressive multiple sclerosis
     Dosage: 325 MILLIGRAM
     Route: 065
  12. ACETAMINOPHEN [Concomitant]
     Active Substance: ACETAMINOPHEN
     Indication: Maintenance of anaesthesia
  13. FENTANYL [Concomitant]
     Active Substance: FENTANYL
     Indication: Maintenance of anaesthesia
     Dosage: ROUTE: INFUSION; AT 1-2 MICROG/KG/H SUPPLEMENTED WITH INTERMITTENT BOLUSES BASED ON THE DEGREE OF...
     Route: 065
  14. KETAMINE [Concomitant]
     Active Substance: KETAMINE
     Indication: Maintenance of anaesthesia
     Dosage: 0.2 MILLIGRAM/KILOGRAM (ROUTE: INFUSION)
     Route: 065
  15. DEXMEDETOMIDINE [Concomitant]
     Active Substance: DEXMEDETOMIDINE
     Indication: Maintenance of anaesthesia
     Dosage: 0.7 MICROGRAM/KILOGRAM (ROUTE: INFUSION; TITRATED DOWN TO 0.3 MICROG/KG/H)
     Route: 065

REACTIONS (2)
  - Fatigue [Unknown]
  - Muscular weakness [Unknown]
